FAERS Safety Report 4396548-9 (Version None)
Quarter: 2004Q2

REPORT INFORMATION
  Report Type: 
  Country: None (occurrence: None)
  Receive Date: 20040621
  Receipt Date: 20030809
  Transmission Date: 20050107
  Serious: Yes (Death, Other)
  Sender: FDA-Public Use
  Company Number: USA-2003-0009143

PATIENT
  Age: 19 Year
  Sex: Male
  Weight: 63.5 kg

DRUGS (7)
  1. OXYCODONE HCL [Suspect]
  2. MORPHINE SULFATE [Suspect]
  3. DIAZEPAM [Suspect]
  4. TEMAZEPAM [Suspect]
  5. CANNABIS [Suspect]
  6. CAFFEINE [Suspect]
  7. NICOTINE [Suspect]

REACTIONS (7)
  - ACCIDENTAL OVERDOSE [None]
  - DELUSION [None]
  - DEPRESSION [None]
  - DRUG ABUSER [None]
  - EUPHORIC MOOD [None]
  - MOOD SWINGS [None]
  - MULTIPLE DRUG OVERDOSE [None]
